FAERS Safety Report 7367977-6 (Version None)
Quarter: 2011Q1

REPORT INFORMATION
  Report Type: 
  Country: None (occurrence: None)
  Receive Date: 20110322
  Receipt Date: 20110309
  Transmission Date: 20110831
  Serious: Yes (Other)
  Sender: FDA-Public Use
  Company Number: PHHY2011GB19158

PATIENT

DRUGS (4)
  1. WARFARIN [Suspect]
  2. FUROSEMIDE [Suspect]
  3. CARBAMAZEPINE [Suspect]
  4. ISOSORBIDE MONONITRATE [Suspect]

REACTIONS (4)
  - COMPLEX PARTIAL SEIZURES [None]
  - PORENCEPHALY [None]
  - TONIC CLONIC MOVEMENTS [None]
  - CONVULSION [None]
